FAERS Safety Report 5377033-4 (Version None)
Quarter: 2007Q2

REPORT INFORMATION
  Report Type: 
  Country: None (occurrence: None)
  Receive Date: 20070628
  Receipt Date: 20070628
  Transmission Date: 20071010
  Serious: Yes (Hospitalization)
  Sender: FDA-Public Use
  Company Number: None

PATIENT
  Age: 74 Year
  Sex: Male
  Weight: 72 kg

DRUGS (2)
  1. IRINOTECAN HCL [Suspect]
     Indication: COLON CANCER
     Dosage: 200MG DAILY DAY 1 + 8 IV
     Route: 042
     Dates: start: 20070607, end: 20070614
  2. CAPECITABINE [Suspect]
     Indication: COLON CANCER
     Dosage: 2000MG BID DAY 1 TO 14 PO
     Route: 048
     Dates: start: 20070522, end: 20070605

REACTIONS (6)
  - ABDOMINAL PAIN [None]
  - ASTHENIA [None]
  - BLOOD CREATININE INCREASED [None]
  - BLOOD UREA INCREASED [None]
  - DIARRHOEA [None]
  - ORTHOSTATIC HYPOTENSION [None]
